FAERS Safety Report 10741650 (Version 2)
Quarter: 2015Q3

REPORT INFORMATION
  Report Type: Spontaneous
  Country: US (occurrence: US)
  Receive Date: 20150123
  Receipt Date: 20150716
  Transmission Date: 20151125
  Serious: Yes (Other)
  Sender: FDA-Public Use
  Company Number: AEGR001082

PATIENT

DRUGS (1)
  1. JUXTAPID [Suspect]
     Active Substance: LOMITAPIDE MESYLATE
     Indication: TYPE IIA HYPERLIPIDAEMIA
     Dosage: 5 MG, QD
     Route: 048
     Dates: start: 20131024

REACTIONS (4)
  - Back pain [Recovered/Resolved]
  - Myalgia [Recovered/Resolved]
  - Gastroenteritis viral [Recovered/Resolved]
  - Catheterisation cardiac [Unknown]
